FAERS Safety Report 24928663 (Version 3)
Quarter: 2025Q3

REPORT INFORMATION
  Report Type: Report from Study
  Country: US (occurrence: US)
  Receive Date: 20250205
  Receipt Date: 20250924
  Transmission Date: 20251020
  Serious: Yes (Other)
  Sender: TAKEDA
  Company Number: US-TAKEDA-2024TUS039043

PATIENT
  Age: 52 Year
  Sex: Female
  Weight: 122.44 kg

DRUGS (17)
  1. GLASSIA [Suspect]
     Active Substance: .ALPHA.1-PROTEINASE INHIBITOR HUMAN
     Indication: Alpha-1 antitrypsin deficiency
     Dosage: 60 MILLIGRAM/KILOGRAM, 1/WEEK
  2. GLASSIA [Suspect]
     Active Substance: .ALPHA.1-PROTEINASE INHIBITOR HUMAN
  3. EPINEPHRINE [Concomitant]
     Active Substance: EPINEPHRINE
  4. ZYRTEC [Concomitant]
     Active Substance: CETIRIZINE HYDROCHLORIDE
  5. TYLENOL [Concomitant]
     Active Substance: ACETAMINOPHEN
  6. SODIUM CHLORIDE [Concomitant]
     Active Substance: SODIUM CHLORIDE
  7. PANTOPRAZOLE SODIUM [Concomitant]
     Active Substance: PANTOPRAZOLE SODIUM
  8. BREZTRI [Concomitant]
     Active Substance: BUDESONIDE\FORMOTEROL\GLYCOPYRROLATE
  9. FLONASE ALLERGY RELIEF [Concomitant]
     Active Substance: FLUTICASONE PROPIONATE
  10. HEPARIN [Concomitant]
     Active Substance: HEPARIN SODIUM
  11. DIPHENHYDRAMINE HYDROCHLORIDE [Concomitant]
     Active Substance: DIPHENHYDRAMINE HYDROCHLORIDE
  12. Lmx [Concomitant]
  13. PROAIR DIGIHALER [Concomitant]
     Active Substance: ALBUTEROL SULFATE
  14. VILAZODONE HYDROCHLORIDE [Concomitant]
     Active Substance: VILAZODONE HYDROCHLORIDE
  15. LEVOFLOXACIN [Concomitant]
     Active Substance: LEVOFLOXACIN
  16. FUROSEMIDE [Concomitant]
     Active Substance: FUROSEMIDE
  17. KLOR CON M [Concomitant]
     Active Substance: POTASSIUM CHLORIDE

REACTIONS (5)
  - Pneumonia [Unknown]
  - Seasonal allergy [Unknown]
  - Influenza [Unknown]
  - Bronchitis [Unknown]
  - Vitamin B12 decreased [Unknown]

NARRATIVE: CASE EVENT DATE: 20240725
